FAERS Safety Report 17991918 (Version 1)
Quarter: 2020Q3

REPORT INFORMATION
  Report Type: Other
  Country: GB (occurrence: GB)
  Receive Date: 20200708
  Receipt Date: 20200708
  Transmission Date: 20201103
  Serious: Yes (Other)
  Sender: FDA-Public Use
  Company Number: GB-CELLTRION INC.-2020GB023948

PATIENT

DRUGS (1)
  1. INFLIXIMAB (UNKNOWN) [Suspect]
     Active Substance: INFLIXIMAB
     Indication: CROHN^S DISEASE
     Dosage: 200 MG
     Route: 042
     Dates: start: 20200624, end: 20200624

REACTIONS (6)
  - Pyrexia [Unknown]
  - Functional gastrointestinal disorder [Unknown]
  - Erythema [Unknown]
  - Syncope [Unknown]
  - Overdose [Unknown]
  - Dyspnoea [Recovered/Resolved]

NARRATIVE: CASE EVENT DATE: 20200624
